FAERS Safety Report 18576041 (Version 1)
Quarter: 2020Q4

REPORT INFORMATION
  Report Type: Spontaneous
  Country: GB (occurrence: GB)
  Receive Date: 20201203
  Receipt Date: 20201203
  Transmission Date: 20210114
  Serious: Yes (Other)
  Sender: FDA-Public Use
  Company Number: GB-ALLERGAN-2046337US

PATIENT
  Sex: Female

DRUGS (4)
  1. CMC [CARBOXYMETHYLCELLULOSE SODIUM] [Suspect]
     Active Substance: CARBOXYMETHYLCELLULOSE SODIUM
     Indication: EYE INFLAMMATION
  2. OPTIVE FUSION (CARBOXYMETHYLCELLULOSE SODIUM\GLYCERIN) [Suspect]
     Active Substance: CARBOXYMETHYLCELLULOSE SODIUM\GLYCERIN
     Indication: LACRIMATION INCREASED
  3. OPTIVE FUSION (CARBOXYMETHYLCELLULOSE SODIUM\GLYCERIN) [Suspect]
     Active Substance: CARBOXYMETHYLCELLULOSE SODIUM\GLYCERIN
     Indication: EYE INFLAMMATION
  4. CMC [CARBOXYMETHYLCELLULOSE SODIUM] [Suspect]
     Active Substance: CARBOXYMETHYLCELLULOSE SODIUM
     Indication: LACRIMATION INCREASED

REACTIONS (1)
  - Breast cancer [Unknown]
